FAERS Safety Report 6005024-9 (Version None)
Quarter: 2008Q4

REPORT INFORMATION
  Report Type: 
  Country: None (occurrence: None)
  Receive Date: 20081216
  Receipt Date: 20080312
  Transmission Date: 20090506
  Serious: No
  Sender: FDA-Public Use
  Company Number: US-BAUSCH-2008BL001168

PATIENT
  Age: 6 Year
  Sex: Male

DRUGS (2)
  1. NEOMYCIN AND POLYMXIN B SULFATES AND HYDROCORTISONE [Suspect]
     Route: 047
     Dates: start: 20080306, end: 20080308
  2. NEOMYCIN AND POLYMXIN B SULFATES AND HYDROCORTISONE [Suspect]
     Indication: DRUG USE FOR UNKNOWN INDICATION
     Route: 047
     Dates: start: 20080308, end: 20080301

REACTIONS (4)
  - CONDITION AGGRAVATED [None]
  - EYE INFECTION VIRAL [None]
  - EYE IRRITATION [None]
  - MEDICATION ERROR [None]
